FAERS Safety Report 5879695-1 (Version None)
Quarter: 2008Q3

REPORT INFORMATION
  Report Type: 
  Country: None (occurrence: None)
  Receive Date: 20080912
  Receipt Date: 20080909
  Transmission Date: 20090109
  Serious: Yes (Other)
  Sender: FDA-Public Use
  Company Number: US-MERCK-0809USA01529

PATIENT

DRUGS (1)
  1. VYTORIN [Suspect]
     Route: 048

REACTIONS (1)
  - THYROID CANCER [None]
